FAERS Safety Report 12698695 (Version 1)
Quarter: 2016Q3

REPORT INFORMATION
  Report Type: Spontaneous
  Country: US (occurrence: US)
  Receive Date: 20160830
  Receipt Date: 20160830
  Transmission Date: 20161109
  Serious: No
  Sender: FDA-Public Use
  Company Number: US-PERRIGO-16US017187

PATIENT
  Sex: Female

DRUGS (3)
  1. EVAMIST [Suspect]
     Active Substance: ESTRADIOL
     Indication: MENOPAUSAL SYMPTOMS
     Dosage: 1.53 MG, QD
     Route: 062
     Dates: start: 20160605, end: 20160614
  2. EVAMIST [Suspect]
     Active Substance: ESTRADIOL
     Indication: HOT FLUSH
  3. EVAMIST [Suspect]
     Active Substance: ESTRADIOL
     Indication: INSOMNIA

REACTIONS (2)
  - Off label use [Recovered/Resolved]
  - Drug ineffective [Unknown]

NARRATIVE: CASE EVENT DATE: 20160605
